FAERS Safety Report 17394579 (Version 1)
Quarter: 2020Q1

REPORT INFORMATION
  Report Type: Spontaneous
  Country: US (occurrence: US)
  Receive Date: 20200210
  Receipt Date: 20200210
  Transmission Date: 20200409
  Serious: No
  Sender: FDA-Public Use
  Company Number: US-ALKEM LABORATORIES LIMITED-US-ALKEM-2019-06815

PATIENT
  Sex: Male
  Weight: 146 kg

DRUGS (1)
  1. GABAPENTIN. [Suspect]
     Active Substance: GABAPENTIN
     Indication: HERPES ZOSTER
     Dosage: 2 DOSAGE FORM, TID
     Route: 048

REACTIONS (2)
  - Hallucination, visual [Recovered/Resolved]
  - Drug ineffective for unapproved indication [Unknown]
